FAERS Safety Report 9684153 (Version 1)
Quarter: 2013Q4

REPORT INFORMATION
  Report Type: Spontaneous
  Country: DK (occurrence: FR)
  Receive Date: 20131112
  Receipt Date: 20131112
  Transmission Date: 20140711
  Serious: Yes (Hospitalization, Congenital Anomaly)
  Sender: FDA-Public Use
  Company Number: FR-FRI-1000050999

PATIENT
  Age: 1 Day
  Sex: 0
  Weight: 3.8 kg

DRUGS (4)
  1. ESCITALOPRAM [Suspect]
     Indication: BIPOLAR DISORDER
     Route: 064
     Dates: end: 20130901
  2. LARGACTIL [Suspect]
     Indication: BIPOLAR DISORDER
     Route: 064
     Dates: end: 20130901
  3. ATARAX [Suspect]
     Indication: BIPOLAR DISORDER
     Route: 064
     Dates: end: 20130901
  4. LEXOMIL [Suspect]
     Indication: BIPOLAR DISORDER
     Route: 064
     Dates: end: 20130901

REACTIONS (4)
  - Hypotonia neonatal [Recovered/Resolved]
  - Feeding disorder neonatal [Recovered/Resolved]
  - Exposure during pregnancy [Recovered/Resolved]
  - Ventricular septal defect [Unknown]
